FAERS Safety Report 6088475-6 (Version None)
Quarter: 2009Q1

REPORT INFORMATION
  Report Type: 
  Country: None (occurrence: None)
  Receive Date: 20090219
  Receipt Date: 20090206
  Transmission Date: 20090719
  Serious: Yes (Hospitalization)
  Sender: FDA-Public Use
  Company Number: 230016K09GBR

PATIENT
  Sex: Male

DRUGS (2)
  1. REBIF [Suspect]
     Indication: DRUG USE FOR UNKNOWN INDICATION
     Dosage: 8.8 MCG, 3 IN 1 WEEKS, SUBCUTANEOUS; 22 MCG
     Route: 058
     Dates: start: 20090114
  2. INSULIN (INSULIN /0030501/) [Concomitant]

REACTIONS (5)
  - BLOOD GLUCOSE INCREASED [None]
  - GASTROINTESTINAL INFECTION [None]
  - HEADACHE [None]
  - HYPOPHAGIA [None]
  - NAUSEA [None]
